FAERS Safety Report 8558567-8 (Version None)
Quarter: 2012Q3

REPORT INFORMATION
  Report Type: 
  Country: None (occurrence: None)
  Receive Date: 20120801
  Receipt Date: 20120725
  Transmission Date: 20120928
  Serious: Yes (Hospitalization)
  Sender: FDA-Public Use
  Company Number: US-PFIZER INC-2012165126

PATIENT
  Sex: Male

DRUGS (2)
  1. CINRYZE [Suspect]
     Indication: PROPHYLAXIS
     Dosage: 1000 UNIT, 3 IN 1 WK
     Route: 042
     Dates: start: 20100917
  2. IBUPROFEN (ADVIL) [Suspect]
     Indication: PRODUCT USED FOR UNKNOWN INDICATION
     Dosage: 3-4 TABLETS A DAY
     Route: 048

REACTIONS (11)
  - INAPPROPRIATE SCHEDULE OF DRUG ADMINISTRATION [None]
  - FATIGUE [None]
  - GASTRITIS [None]
  - HEREDITARY ANGIOEDEMA [None]
  - PYREXIA [None]
  - DYSPEPSIA [None]
  - DIVERTICULUM INTESTINAL [None]
  - AGITATION [None]
  - GASTROOESOPHAGEAL REFLUX DISEASE [None]
  - PEPTIC ULCER [None]
  - GASTRODUODENITIS [None]
